FAERS Safety Report 8197530-6 (Version None)
Quarter: 2012Q1

REPORT INFORMATION
  Report Type: 
  Country: None (occurrence: None)
  Receive Date: 20120309
  Receipt Date: 20120229
  Transmission Date: 20120608
  Serious: Yes (Hospitalization)
  Sender: FDA-Public Use
  Company Number: FR-MILLENNIUM PHARMACEUTICALS, INC.-2012-00652

PATIENT

DRUGS (10)
  1. LANSOPRAZOLE [Concomitant]
     Indication: PROPHYLAXIS
     Dosage: 15 MG, UNK
     Route: 048
     Dates: start: 20111201
  2. REVLIMID [Suspect]
     Indication: MULTIPLE MYELOMA
     Dosage: 25 MG, UNK
     Route: 065
     Dates: start: 20111025, end: 20111222
  3. POLYETHYLENE GLYCOL [Concomitant]
     Indication: CONSTIPATION
     Dosage: 20 G, UNK
     Route: 048
     Dates: start: 20111201, end: 20120119
  4. BACTRIM [Concomitant]
     Indication: PROPHYLAXIS
     Dosage: UNK
     Dates: start: 20111025
  5. MORPHINE SULFATE [Concomitant]
     Indication: PAIN
     Dosage: 20 MG, UNK
     Route: 048
     Dates: start: 20111201, end: 20120101
  6. VELCADE [Suspect]
     Indication: MULTIPLE MYELOMA
     Dosage: 1.3 MG/M2, UNK
     Route: 065
     Dates: start: 20111025, end: 20111219
  7. DEXAMETHASONE [Suspect]
     Indication: MULTIPLE MYELOMA
     Dosage: 20 MG, UNK
     Route: 065
     Dates: start: 20111025, end: 20111220
  8. CYCLOPHOSPHAMIDE [Suspect]
     Indication: HAEMATOPOIETIC STEM CELL MOBILISATION
     Dosage: 2.8 G, UNK
     Route: 042
     Dates: start: 20120112, end: 20120113
  9. ZELITREX                           /01269701/ [Concomitant]
     Indication: PROPHYLAXIS
     Dosage: 800 MG, UNK
     Route: 048
     Dates: start: 20111025
  10. ALPRAZOLAM [Concomitant]
     Indication: ANXIETY
     Dosage: 0.25 MG, UNK
     Route: 048
     Dates: start: 20120101, end: 20120120

REACTIONS (1)
  - LUNG DISORDER [None]
